FAERS Safety Report 15169089 (Version 2)
Quarter: 2018Q3

REPORT INFORMATION
  Report Type: Spontaneous
  Country: US (occurrence: US)
  Receive Date: 20180720
  Receipt Date: 20180921
  Transmission Date: 20181010
  Serious: No
  Sender: FDA-Public Use
  Company Number: US-IGSA-SR10006330

PATIENT
  Age: 54 Year
  Sex: Female

DRUGS (9)
  1. FLEBOGAMMA DIF [Suspect]
     Active Substance: HUMAN IMMUNOGLOBULIN G
     Dosage: 20 G, UNK
     Dates: start: 20180119, end: 20180119
  2. FLEBOGAMMA DIF [Suspect]
     Active Substance: HUMAN IMMUNOGLOBULIN G
     Indication: PRODUCT USED FOR UNKNOWN INDICATION
     Dosage: 35 G, UNK
     Dates: start: 20171118, end: 20171118
  3. FLEBOGAMMA DIF [Suspect]
     Active Substance: HUMAN IMMUNOGLOBULIN G
     Dosage: UNK
     Dates: start: 20171216, end: 20171216
  4. FLEBOGAMMA DIF [Suspect]
     Active Substance: HUMAN IMMUNOGLOBULIN G
     Dosage: UNK
     Dates: start: 20171118, end: 20171118
  5. FLEBOGAMMA DIF [Suspect]
     Active Substance: HUMAN IMMUNOGLOBULIN G
     Dosage: UNK
     Dates: start: 20171216, end: 20171216
  6. FLEBOGAMMA DIF [Suspect]
     Active Substance: HUMAN IMMUNOGLOBULIN G
     Dosage: 10 G, UNK
     Dates: start: 20180119, end: 20180119
  7. FLEBOGAMMA DIF [Suspect]
     Active Substance: HUMAN IMMUNOGLOBULIN G
     Dosage: UNK
     Dates: start: 20171118, end: 20171118
  8. FLEBOGAMMA DIF [Suspect]
     Active Substance: HUMAN IMMUNOGLOBULIN G
     Dosage: 35 G, UNK
     Dates: start: 20171216, end: 20171216
  9. FLEBOGAMMA DIF [Suspect]
     Active Substance: HUMAN IMMUNOGLOBULIN G
     Dosage: 5 G, UNK
     Dates: start: 20180119, end: 20180119

REACTIONS (5)
  - Headache [Unknown]
  - Chest discomfort [Unknown]
  - Flushing [Unknown]
  - Back pain [Unknown]
  - Chest pain [Unknown]

NARRATIVE: CASE EVENT DATE: 20171118
